FAERS Safety Report 6019585-7 (Version None)
Quarter: 2008Q4

REPORT INFORMATION
  Report Type: 
  Country: None (occurrence: None)
  Receive Date: 20081224
  Receipt Date: 20081217
  Transmission Date: 20090506
  Serious: Yes (Hospitalization)
  Sender: FDA-Public Use
  Company Number: GB-AMGEN-US324821

PATIENT
  Age: 69 Year
  Sex: Female
  Weight: 72 kg

DRUGS (9)
  1. ENBREL [Suspect]
     Indication: RHEUMATOID ARTHRITIS
     Route: 058
  2. ASPIRIN [Concomitant]
     Route: 048
  3. ATORVASTATIN CALCIUM [Concomitant]
     Route: 048
  4. OXYNORM [Concomitant]
     Dosage: 5 MG EVERY 1 PRN
     Route: 048
  5. ENALAPRIL MALEATE [Concomitant]
  6. METFORMIN HCL [Concomitant]
  7. OMEPRAZOLE [Concomitant]
     Route: 048
  8. AMITRIPTYLINE [Concomitant]
     Route: 048
  9. BISOPROLOL FUMARATE [Concomitant]

REACTIONS (3)
  - LETHARGY [None]
  - MALAISE [None]
  - PNEUMONIA [None]
